FAERS Safety Report 23626903 (Version 9)
Quarter: 2025Q1

REPORT INFORMATION
  Report Type: Spontaneous
  Country: JP (occurrence: JP)
  Receive Date: 20240313
  Receipt Date: 20250314
  Transmission Date: 20250408
  Serious: Yes (Hospitalization, Other)
  Sender: PFIZER
  Company Number: JP-PFIZER INC-PV202400031319

PATIENT
  Age: 14 Year
  Sex: Male
  Weight: 79.3 kg

DRUGS (6)
  1. LITFULO [Suspect]
     Active Substance: RITLECITINIB TOSYLATE
     Indication: Alopecia areata
     Dosage: 50 MG, 1X/DAY
     Route: 048
     Dates: start: 20231212, end: 20240305
  2. FEXOFENADINE HYDROCHLORIDE\PSEUDOEPHEDRINE HYDROCHLORIDE [Concomitant]
     Active Substance: FEXOFENADINE HYDROCHLORIDE\PSEUDOEPHEDRINE HYDROCHLORIDE
     Indication: Rhinitis
     Dosage: 4 DF, 1X/DAY
     Route: 048
     Dates: start: 20240104, end: 20240304
  3. GASTER [Concomitant]
     Active Substance: FAMOTIDINE
     Indication: Nausea
     Dosage: 20 MG, 1X/DAY
     Route: 048
     Dates: start: 20231212, end: 20240304
  4. METOCLOPRAMIDE [Concomitant]
     Active Substance: METOCLOPRAMIDE
     Indication: Nausea
     Dosage: 5 MG, 1X/DAY
     Route: 048
     Dates: start: 20231226, end: 20240304
  5. CALONAL [Concomitant]
     Active Substance: ACETAMINOPHEN
     Indication: Pyrexia
     Route: 048
     Dates: start: 20240116, end: 20240304
  6. CALONAL [Concomitant]
     Active Substance: ACETAMINOPHEN
     Indication: Headache

REACTIONS (2)
  - Rhabdomyolysis [Recovered/Resolved]
  - Hepatic function abnormal [Recovered/Resolved]

NARRATIVE: CASE EVENT DATE: 20240305
